FAERS Safety Report 23064582 (Version 1)
Quarter: 2023Q4

REPORT INFORMATION
  Report Type: Spontaneous
  Country: US (occurrence: None)
  Receive Date: 20231013
  Receipt Date: 20231013
  Transmission Date: 20240109
  Serious: Yes (Hospitalization)
  Sender: FDA-Public Use
  Company Number: None

PATIENT
  Age: 81 Year
  Sex: Male
  Weight: 80 kg

DRUGS (1)
  1. NIRMATRELVIR\RITONAVIR [Suspect]
     Active Substance: NIRMATRELVIR\RITONAVIR
     Dosage: FREQUENCY : TWICE A DAY;?OTHER ROUTE : OTHER;?
     Route: 050
     Dates: start: 20230126, end: 20230130

REACTIONS (4)
  - Chromaturia [None]
  - Chromaturia [None]
  - Diarrhoea [None]
  - Chromaturia [None]

NARRATIVE: CASE EVENT DATE: 20230128
